FAERS Safety Report 4325929-4 (Version None)
Quarter: 2004Q1

REPORT INFORMATION
  Report Type: 
  Country: None (occurrence: None)
  Receive Date: 20040324
  Receipt Date: 20040310
  Transmission Date: 20041129
  Serious: No
  Sender: FDA-Public Use
  Company Number: 04H-163-0253674-00

PATIENT

DRUGS (1)
  1. DOPAMINE HCL [Suspect]
     Dosage: 18 MCG/KG/MIN, INTRAVENOUS
     Route: 042

REACTIONS (2)
  - BLOOD PRESSURE DECREASED [None]
  - INTRACRANIAL PRESSURE INCREASED [None]
